FAERS Safety Report 7913243-7 (Version None)
Quarter: 2011Q4

REPORT INFORMATION
  Report Type: 
  Country: None (occurrence: None)
  Receive Date: 20111114
  Receipt Date: 20111103
  Transmission Date: 20120403
  Serious: Yes (Other)
  Sender: FDA-Public Use
  Company Number: US-ASTRAZENECA-2011SE66947

PATIENT
  Sex: Male

DRUGS (1)
  1. SEROQUEL [Suspect]
     Route: 048
     Dates: start: 20080101

REACTIONS (5)
  - HYPERSENSITIVITY [None]
  - DRUG HYPERSENSITIVITY [None]
  - PHYSICAL ASSAULT [None]
  - AMNESIA [None]
  - IMPRISONMENT [None]
